FAERS Safety Report 5192139-0 (Version None)
Quarter: 2006Q4

REPORT INFORMATION
  Report Type: 
  Country: None (occurrence: None)
  Receive Date: 20061220
  Receipt Date: 20061219
  Transmission Date: 20070319
  Serious: Yes (Hospitalization)
  Sender: FDA-Public Use
  Company Number: CFNT Y-33 2

PATIENT
  Age: 45 Year
  Sex: Male

DRUGS (1)
  1. CEFDITOREN PIVOXIL 300MG [Suspect]
     Indication: NASOPHARYNGITIS
     Dosage: 300MG/DAY ORAL
     Route: 048
     Dates: start: 20061101, end: 20061104

REACTIONS (2)
  - HEPATIC FUNCTION ABNORMAL [None]
  - JAUNDICE [None]
